FAERS Safety Report 7351025-8 (Version None)
Quarter: 2011Q1

REPORT INFORMATION
  Report Type: 
  Country: None (occurrence: None)
  Receive Date: 20110314
  Receipt Date: 20110309
  Transmission Date: 20110831
  Serious: No
  Sender: FDA-Public Use
  Company Number: US-ROXANE LABORATORIES, INC.-2011-RO-00162RO

PATIENT
  Age: 66 Year
  Sex: Female

DRUGS (2)
  1. LOSARTAN POTASSIUM [Suspect]
     Dates: start: 20100627, end: 20100801
  2. FLONASE [Concomitant]
     Indication: MULTIPLE ALLERGIES
     Route: 045

REACTIONS (1)
  - COUGH [None]
